FAERS Safety Report 12621287 (Version 2)
Quarter: 2017Q2

REPORT INFORMATION
  Report Type: Spontaneous
  Country: US (occurrence: US)
  Receive Date: 20160804
  Receipt Date: 20170419
  Transmission Date: 20170830
  Serious: Yes (Other)
  Sender: FDA-Public Use
  Company Number: US-PFIZER INC-2016366816

PATIENT
  Age: 58 Year
  Sex: Male

DRUGS (1)
  1. XELJANZ [Suspect]
     Active Substance: TOFACITINIB CITRATE
     Indication: RHEUMATOID ARTHRITIS
     Dosage: 5 MG, TAKE 1 TABLET BY MOUTH TWICE DAILY
     Route: 048
     Dates: start: 20160430, end: 20170325

REACTIONS (2)
  - Tuberculosis [Unknown]
  - Arthralgia [Unknown]
